FAERS Safety Report 4785343-4 (Version None)
Quarter: 2005Q3

REPORT INFORMATION
  Report Type: 
  Country: None (occurrence: None)
  Receive Date: 20050929
  Receipt Date: 20050920
  Transmission Date: 20060218
  Serious: Yes (Hospitalization, Other)
  Sender: FDA-Public Use
  Company Number: 2005077425

PATIENT
  Age: 68 Year
  Sex: Female
  Weight: 102 kg

DRUGS (9)
  1. SOMAVERT [Suspect]
     Indication: ACROMEGALY
     Dosage: SEE IMAGE
     Route: 058
     Dates: start: 20040101
  2. SOMAVERT [Suspect]
     Indication: ACROMEGALY
     Dosage: SEE IMAGE
     Route: 058
     Dates: start: 20050401
  3. INSULIN [Suspect]
     Indication: DIABETES MELLITUS NON-INSULIN-DEPENDENT
     Dosage: 80 I.U. (80 I.U., UNKNOWN), SUBCUTANEOUS
     Route: 058
  4. GLUCOPHAGE [Concomitant]
  5. DAONIL (GLIBENCLAMIDE) [Concomitant]
  6. ACARBOSE [Concomitant]
  7. KERLONE [Concomitant]
  8. COAPROVEL (HYDROCHOROTHIAZIDE, IRBESARTAN) [Concomitant]
  9. LEVOTHYROXINE SODIUM [Concomitant]

REACTIONS (4)
  - ACIDOSIS [None]
  - HYPERGLYCAEMIA [None]
  - HYPOGLYCAEMIC COMA [None]
  - OVERDOSE [None]
